FAERS Safety Report 7312436-X (Version None)
Quarter: 2011Q1

REPORT INFORMATION
  Report Type: 
  Country: None (occurrence: None)
  Receive Date: 20110224
  Receipt Date: 20110222
  Transmission Date: 20110831
  Serious: Yes (Other)
  Sender: FDA-Public Use
  Company Number: US-ROXANE LABORATORIES, INC.-2011-RO-00211RO

PATIENT
  Age: 17 Year
  Sex: Female

DRUGS (2)
  1. METHADONE [Suspect]
     Indication: DRUG DEPENDENCE
  2. BUPRENORPHINE HCL [Suspect]
     Indication: DRUG DEPENDENCE
     Dosage: 16 MG
     Route: 060

REACTIONS (2)
  - HEPATIC ENZYME INCREASED [None]
  - THERAPEUTIC RESPONSE DECREASED [None]
